FAERS Safety Report 8003213-5 (Version None)
Quarter: 2011Q4

REPORT INFORMATION
  Report Type: 
  Country: None (occurrence: None)
  Receive Date: 20111222
  Receipt Date: 20111216
  Transmission Date: 20120403
  Serious: Yes (Hospitalization)
  Sender: FDA-Public Use
  Company Number: PHHY2011FR109671

PATIENT
  Sex: Female
  Weight: 71 kg

DRUGS (8)
  1. ZOLEDRONOC ACID [Suspect]
     Indication: OSTEOPOROSIS
     Dosage: UNK UKN, UNK
     Route: 042
     Dates: start: 20110402
  2. PREDNISONE TAB [Concomitant]
     Indication: POLYARTHRITIS
     Dosage: 10 MG, UNK
     Dates: start: 20030101
  3. UVEDOSE [Concomitant]
     Dosage: UNK UKN, UNK
     Dates: start: 20110101
  4. LYRICA [Concomitant]
     Dosage: UNK UKN, UNK
     Dates: start: 20110101, end: 20110101
  5. DURAGESIC-100 [Concomitant]
     Dosage: UNK UKN, UNK
     Dates: start: 20110101, end: 20111201
  6. TOCILIZUMAB [Concomitant]
     Indication: POLYARTHRITIS
     Dosage: 8 MG, PER MONTH
     Dates: start: 20010101, end: 20110901
  7. CORTISONE ACETATE [Concomitant]
     Dosage: UNK UKN, UNK
     Dates: start: 20110101
  8. FLURBIPROFEN [Concomitant]
     Dosage: UNK UKN, UNK
     Dates: start: 20110101

REACTIONS (1)
  - INTERVERTEBRAL DISC PROTRUSION [None]
